FAERS Safety Report 5940659-0 (Version None)
Quarter: 2008Q4

REPORT INFORMATION
  Report Type: 
  Country: None (occurrence: None)
  Receive Date: 20081030
  Receipt Date: 20081016
  Transmission Date: 20090506
  Serious: Yes (Hospitalization)
  Sender: FDA-Public Use
  Company Number: FEI2008-1949

PATIENT
  Age: 37 Year
  Sex: Female

DRUGS (1)
  1. INTRAUTERINE DEVICE [Suspect]
     Indication: CONTRACEPTION
     Dosage: INTRA-UTERINE
     Route: 015

REACTIONS (11)
  - ABDOMINAL PAIN LOWER [None]
  - ABSCESS [None]
  - ACTINOMYCOSIS [None]
  - BACTEROIDES INFECTION [None]
  - IUCD COMPLICATION [None]
  - IUD MIGRATION [None]
  - PATHOGEN RESISTANCE [None]
  - PURULENT DISCHARGE [None]
  - SKIN ULCER [None]
  - STREPTOCOCCAL INFECTION [None]
  - UTERINE RUPTURE [None]
